FAERS Safety Report 6334648-4 (Version None)
Quarter: 2009Q3

REPORT INFORMATION
  Report Type: 
  Country: None (occurrence: None)
  Receive Date: 20090831
  Receipt Date: 20090825
  Transmission Date: 20100115
  Serious: Yes (Other)
  Sender: FDA-Public Use
  Company Number: EG-ROCHE-652629

PATIENT
  Sex: Female

DRUGS (5)
  1. XELODA [Suspect]
     Indication: BREAST CANCER
     Dosage: DRUG NAME: ZELODA
     Route: 065
  2. HERCEPTIN [Suspect]
     Indication: BREAST CANCER
     Route: 065
  3. NAVELBINE [Suspect]
     Indication: BREAST CANCER
     Dosage: DRUG NAME: NAVILBINE
     Route: 065
  4. NAVELBINE [Suspect]
     Dosage: DRUG NAME: NAVILBINE
     Route: 065
  5. TAXOL [Suspect]
     Indication: BREAST CANCER
     Route: 065

REACTIONS (1)
  - EPILEPSY [None]
